FAERS Safety Report 8986821 (Version 1)
Quarter: 2012Q4

REPORT INFORMATION
  Report Type: 
  Country: DZ (occurrence: DZ)
  Receive Date: 20121226
  Receipt Date: 20121226
  Transmission Date: 20130627
  Serious: Yes (Death, Hospitalization)
  Sender: FDA-Public Use
  Company Number: DZ-ROCHE-1173353

PATIENT
  Age: 50 Year
  Sex: Female

DRUGS (3)
  1. AVASTIN [Suspect]
     Indication: BREAST CANCER
     Route: 042
     Dates: start: 201211
  2. TAXOL [Suspect]
     Indication: BREAST CANCER
     Route: 042
     Dates: start: 201211
  3. NAVELBINE [Suspect]
     Indication: BREAST CANCER
     Route: 042
     Dates: start: 201211

REACTIONS (7)
  - Dehydration [Fatal]
  - Asthenia [Fatal]
  - General physical health deterioration [Fatal]
  - Cardiac failure [Unknown]
  - Ejection fraction decreased [Unknown]
  - Decreased appetite [Unknown]
  - Diarrhoea [Unknown]
